FAERS Safety Report 5209645-2 (Version None)
Quarter: 2007Q1

REPORT INFORMATION
  Report Type: 
  Country: None (occurrence: None)
  Receive Date: 20070116
  Receipt Date: 20070104
  Transmission Date: 20070707
  Serious: Yes (Other)
  Sender: FDA-Public Use
  Company Number: GB-PFIZER INC-2006152607

PATIENT
  Age: 61 Year
  Sex: Female

DRUGS (4)
  1. LYRICA [Suspect]
     Indication: NEURALGIA
     Route: 048
     Dates: start: 20060910, end: 20060927
  2. CODEINE SUL TAB [Suspect]
     Indication: NEURALGIA
  3. PARACETAMOL [Suspect]
     Indication: NEURALGIA
  4. ASPIRIN [Suspect]
     Indication: NEURALGIA

REACTIONS (11)
  - CONVULSION [None]
  - DIZZINESS [None]
  - DRUG INEFFECTIVE [None]
  - EUPHORIC MOOD [None]
  - FALL [None]
  - FATIGUE [None]
  - FEELING COLD [None]
  - MULTIPLE SCLEROSIS [None]
  - NAUSEA [None]
  - PALLOR [None]
  - THINKING ABNORMAL [None]
